FAERS Safety Report 11418871 (Version 1)
Quarter: 2015Q3

REPORT INFORMATION
  Report Type: Spontaneous
  Country: AU (occurrence: AU)
  Receive Date: 20150826
  Receipt Date: 20150826
  Transmission Date: 20151125
  Serious: Yes (Hospitalization)
  Sender: FDA-Public Use
  Company Number: AU-009507513-1508AUS010031

PATIENT
  Age: 48 Year
  Sex: Male

DRUGS (6)
  1. PROPOFOL. [Suspect]
     Active Substance: PROPOFOL
     Dosage: UNK
  2. CEFAZOLIN SODIUM. [Suspect]
     Active Substance: CEFAZOLIN SODIUM
     Dosage: UNK
  3. FENTANYL. [Suspect]
     Active Substance: FENTANYL
     Dosage: UNK
  4. VECURONIUM BROMIDE. [Suspect]
     Active Substance: VECURONIUM BROMIDE
  5. DEXAMETHASONE. [Suspect]
     Active Substance: DEXAMETHASONE
     Dosage: UNK
  6. PARECOXIB SODIUM [Suspect]
     Active Substance: PARECOXIB SODIUM
     Dosage: UNK

REACTIONS (3)
  - Anaphylactic reaction [Unknown]
  - Hypotension [Unknown]
  - Rash [Unknown]

NARRATIVE: CASE EVENT DATE: 20150324
